FAERS Safety Report 7669567-4 (Version None)
Quarter: 2011Q3

REPORT INFORMATION
  Report Type: 
  Country: None (occurrence: None)
  Receive Date: 20110808
  Receipt Date: 20110721
  Transmission Date: 20111222
  Serious: No
  Sender: FDA-Public Use
  Company Number: US-BAYER-2011-064349

PATIENT
  Age: 53 Year
  Sex: Male

DRUGS (3)
  1. ULTRAVIST 150 [Suspect]
     Indication: NECK MASS
     Dosage: 80 ML, ONCE
     Route: 042
     Dates: start: 20110721, end: 20110721
  2. LANTUS [Concomitant]
  3. HUMALOG [Concomitant]

REACTIONS (2)
  - URTICARIA [None]
  - PRURITUS [None]
